FAERS Safety Report 23962570 (Version 1)
Quarter: 2024Q2

REPORT INFORMATION
  Report Type: Spontaneous
  Country: US (occurrence: None)
  Receive Date: 20240610
  Receipt Date: 20240610
  Transmission Date: 20240716
  Serious: Yes (Other)
  Sender: FDA-Public Use
  Company Number: None

PATIENT
  Age: 62 Year
  Sex: Male
  Weight: 111.15 kg

DRUGS (1)
  1. ALTAFLUOR [Suspect]
     Active Substance: BENOXINATE HYDROCHLORIDE\FLUORESCEIN SODIUM
     Indication: Ophthalmological examination
     Dates: start: 20230403, end: 20230403

REACTIONS (1)
  - Dyschromatopsia [None]

NARRATIVE: CASE EVENT DATE: 20230403
